FAERS Safety Report 7105435-4 (Version None)
Quarter: 2010Q4

REPORT INFORMATION
  Report Type: 
  Country: None (occurrence: None)
  Receive Date: 20101110
  Receipt Date: 20101028
  Transmission Date: 20110411
  Serious: Yes (Hospitalization, Other)
  Sender: FDA-Public Use
  Company Number: JPI-P-012802

PATIENT
  Sex: Female

DRUGS (2)
  1. XYREM [Suspect]
     Indication: PRODUCT USED FOR UNKNOWN INDICATION
     Dosage: 4 GM, ORAL, 12 GM (4 GM, 3 IN 1 D), ORAL
     Route: 048
     Dates: start: 20030213
  2. XYREM [Suspect]
     Indication: PRODUCT USED FOR UNKNOWN INDICATION
     Dosage: 4 GM, ORAL, 12 GM (4 GM, 3 IN 1 D), ORAL
     Route: 048
     Dates: start: 20050713

REACTIONS (3)
  - GASTRIC DISORDER [None]
  - MALAISE [None]
  - MUSCULOSKELETAL DISORDER [None]
